FAERS Safety Report 20670656 (Version 1)
Quarter: 2022Q2

REPORT INFORMATION
  Report Type: Spontaneous
  Country: US (occurrence: US)
  Receive Date: 20220404
  Receipt Date: 20220404
  Transmission Date: 20220721
  Serious: No
  Sender: FDA-Public Use
  Company Number: US-PFIZER INC-202101559222

PATIENT
  Age: 84 Year
  Sex: Female

DRUGS (1)
  1. ATORVASTATIN CALCIUM [Suspect]
     Active Substance: ATORVASTATIN CALCIUM
     Dosage: UNK

REACTIONS (6)
  - Drug intolerance [Unknown]
  - Abdominal discomfort [Unknown]
  - Depressed mood [Unknown]
  - Crying [Unknown]
  - Personality change [Unknown]
  - Abnormal behaviour [Unknown]
